FAERS Safety Report 7991185-9 (Version None)
Quarter: 2011Q4

REPORT INFORMATION
  Report Type: 
  Country: None (occurrence: None)
  Receive Date: 20111219
  Receipt Date: 20111209
  Transmission Date: 20120403
  Serious: Yes (Hospitalization)
  Sender: FDA-Public Use
  Company Number: US-GLAXOSMITHKLINE-A0873065A

PATIENT
  Age: 42 Year
  Sex: Female

DRUGS (2)
  1. AVANDAMET [Suspect]
     Indication: DIABETES MELLITUS
     Route: 048
     Dates: start: 20020101, end: 20040101
  2. AVANDIA [Suspect]
     Indication: DIABETES MELLITUS
     Route: 048
     Dates: end: 20020101

REACTIONS (8)
  - RETINAL HAEMORRHAGE [None]
  - CARDIAC FAILURE CHRONIC [None]
  - ANGINA PECTORIS [None]
  - BLINDNESS [None]
  - MYOCARDIAL INFARCTION [None]
  - UTERINE CANCER [None]
  - RENAL DISORDER [None]
  - EYE DISORDER [None]
